FAERS Safety Report 11367894 (Version 1)
Quarter: 2015Q3

REPORT INFORMATION
  Report Type: Spontaneous
  Country: US (occurrence: None)
  Receive Date: 20150810
  Receipt Date: 20150810
  Transmission Date: 20151125
  Serious: Yes (Life-Threatening, Hospitalization)
  Sender: FDA-Public Use
  Company Number: None

PATIENT
  Age: 62 Year
  Sex: Male
  Weight: 97.9 kg

DRUGS (11)
  1. INVOKANA [Suspect]
     Active Substance: CANAGLIFLOZIN
     Indication: TYPE 2 DIABETES MELLITUS
     Route: 048
     Dates: start: 20150716, end: 20150724
  2. FENOFIBRATE NANOCRYSTALLIZED [Concomitant]
  3. BISOPROLOL-HYDROCHLOROTHIAZIDE [Concomitant]
  4. ENALAPRIL [Concomitant]
     Active Substance: ENALAPRIL
  5. NISOLDIPINE SR [Concomitant]
  6. CRESTOR [Concomitant]
     Active Substance: ROSUVASTATIN CALCIUM
  7. GLIMIPRIDE [Concomitant]
  8. INVOKANA [Concomitant]
     Active Substance: CANAGLIFLOZIN
  9. CLOPIDOGREL [Concomitant]
     Active Substance: CLOPIDOGREL BISULFATE
  10. ASPIRIN. [Concomitant]
     Active Substance: ASPIRIN
  11. TESTOSTERONE. [Concomitant]
     Active Substance: TESTOSTERONE

REACTIONS (11)
  - Mucosal dryness [None]
  - Abdominal pain upper [None]
  - Tachypnoea [None]
  - Dyspnoea [None]
  - Nausea [None]
  - Haematemesis [None]
  - Unevaluable event [None]
  - Diabetic ketoacidosis [None]
  - Weight decreased [None]
  - Dizziness [None]
  - Tachycardia [None]

NARRATIVE: CASE EVENT DATE: 20150727
